FAERS Safety Report 7601794-4 (Version None)
Quarter: 2011Q3

REPORT INFORMATION
  Report Type: 
  Country: None (occurrence: None)
  Receive Date: 20110711
  Receipt Date: 20110630
  Transmission Date: 20111222
  Serious: Yes (Hospitalization)
  Sender: FDA-Public Use
  Company Number: FR-ASTRAZENECA-2011SE40008

PATIENT
  Sex: Male

DRUGS (10)
  1. LANSOPRAZOLE [Suspect]
     Dates: start: 20110511, end: 20110517
  2. SYMBICORT [Concomitant]
     Indication: ASTHMA
     Dosage: 160/4.5 UG PER DOSE, ONE INHALATION TWO TIMES PER DAY
     Route: 055
  3. CARTEOL LP [Concomitant]
     Indication: GLAUCOMA
     Route: 047
     Dates: start: 20100915, end: 20100920
  4. NEXIUM [Suspect]
     Route: 048
     Dates: start: 20100801, end: 20100901
  5. SINGULAIR [Concomitant]
     Indication: ASTHMA
     Route: 048
  6. DEXERYL [Concomitant]
     Dates: start: 20101001
  7. LANSOPRAZOLE [Suspect]
     Dates: start: 20110315, end: 20110401
  8. LANSOPRAZOLE [Suspect]
     Dates: start: 20100801, end: 20100901
  9. TADENAN [Concomitant]
     Indication: PROSTATIC ADENOMA
  10. COZAAR [Concomitant]
     Indication: HYPERTENSION
     Route: 048
     Dates: start: 19910601

REACTIONS (2)
  - ACUTE GENERALISED EXANTHEMATOUS PUSTULOSIS [None]
  - DRUG RASH WITH EOSINOPHILIA AND SYSTEMIC SYMPTOMS [None]
